FAERS Safety Report 18192756 (Version 1)
Quarter: 2020Q3

REPORT INFORMATION
  Report Type: Spontaneous
  Country: FR (occurrence: FR)
  Receive Date: 20200825
  Receipt Date: 20200825
  Transmission Date: 20201103
  Serious: Yes (Hospitalization)
  Sender: FDA-Public Use
  Company Number: FR-GLAXOSMITHKLINE-FR2020169956

PATIENT
  Age: 91 Year
  Sex: Male
  Weight: 75 kg

DRUGS (1)
  1. AVODART [Suspect]
     Active Substance: DUTASTERIDE
     Indication: PROSTATIC ADENOMA
     Dosage: 1 DF, QD
     Route: 048
     Dates: start: 20180101, end: 20200425

REACTIONS (4)
  - Asthenia [Recovering/Resolving]
  - Blood albumin decreased [Recovering/Resolving]
  - Gamma-glutamyltransferase increased [Recovering/Resolving]
  - Transaminases increased [Recovering/Resolving]

NARRATIVE: CASE EVENT DATE: 20200425
